FAERS Safety Report 12358714 (Version 1)
Quarter: 2016Q2

REPORT INFORMATION
  Report Type: Spontaneous
  Country: US (occurrence: US)
  Receive Date: 20160512
  Receipt Date: 20160512
  Transmission Date: 20160815
  Serious: No
  Sender: FDA-Public Use
  Company Number: US-BAYER-2016-091631

PATIENT
  Age: 84 Year
  Sex: Male
  Weight: 81.63 kg

DRUGS (10)
  1. CLARITIN [Suspect]
     Active Substance: LORATADINE
     Indication: SEASONAL ALLERGY
     Dosage: 1 DF, ONCE
     Route: 048
     Dates: start: 20160510
  2. APIXABAN [Concomitant]
     Active Substance: APIXABAN
  3. PRAVASTATIN [Concomitant]
     Active Substance: PRAVASTATIN\PRAVASTATIN SODIUM
  4. ACENOCOUMAROL [Concomitant]
     Active Substance: ACENOCOUMAROL
  5. RANEXA [Concomitant]
     Active Substance: RANOLAZINE
  6. BAYER LOW DOSE [Concomitant]
     Active Substance: ASPIRIN
  7. ISOSORBIDE. [Concomitant]
     Active Substance: ISOSORBIDE
  8. ALLOPURINOL. [Concomitant]
     Active Substance: ALLOPURINOL
  9. TINCTURE IODINE [Concomitant]
  10. METOPROLOL. [Concomitant]
     Active Substance: METOPROLOL

REACTIONS (3)
  - Drug effect delayed [None]
  - Headache [Recovered/Resolved]
  - Oropharyngeal pain [Recovered/Resolved]

NARRATIVE: CASE EVENT DATE: 20160510
